FAERS Safety Report 8300558-6 (Version None)
Quarter: 2012Q2

REPORT INFORMATION
  Report Type: 
  Country: None (occurrence: None)
  Receive Date: 20120420
  Receipt Date: 20120412
  Transmission Date: 20120825
  Serious: Yes (Other)
  Sender: FDA-Public Use
  Company Number: BR-JNJFOC-20120406852

PATIENT
  Sex: Female
  Weight: 68 kg

DRUGS (1)
  1. DOXORUBICIN HCL [Suspect]
     Indication: OVARIAN CANCER RECURRENT
     Route: 042
     Dates: start: 20111110

REACTIONS (8)
  - OXYGEN SATURATION DECREASED [None]
  - COUGH [None]
  - MALAISE [None]
  - OROPHARYNGEAL DISCOMFORT [None]
  - INFUSION RELATED REACTION [None]
  - NAUSEA [None]
  - HYPERHIDROSIS [None]
  - VISUAL IMPAIRMENT [None]
